FAERS Safety Report 4512828-8 (Version None)
Quarter: 2004Q4

REPORT INFORMATION
  Report Type: 
  Country: None (occurrence: None)
  Receive Date: 20041130
  Receipt Date: 20041118
  Transmission Date: 20050328
  Serious: Yes (Hospitalization)
  Sender: FDA-Public Use
  Company Number: FR-JNJFOC-20040103495

PATIENT
  Age: 28 Year
  Sex: Male
  Weight: 65 kg

DRUGS (6)
  1. REMICADE [Suspect]
     Route: 042
  2. REMICADE [Suspect]
     Indication: ANKYLOSING SPONDYLITIS
     Route: 042
  3. CEBUTID [Concomitant]
     Indication: ANKYLOSING SPONDYLITIS
     Route: 049
  4. CONTRAMAL [Concomitant]
     Indication: ANKYLOSING SPONDYLITIS
     Route: 049
  5. OMEPRAZOLE [Concomitant]
     Route: 049
  6. DAFALGAN [Concomitant]
     Indication: ANKYLOSING SPONDYLITIS
     Route: 049

REACTIONS (5)
  - ANKYLOSING SPONDYLITIS [None]
  - CONDITION AGGRAVATED [None]
  - DISEASE PROGRESSION [None]
  - POLYARTHRITIS [None]
  - TACHYPHYLAXIS [None]
